FAERS Safety Report 5680674-8 (Version None)
Quarter: 2008Q1

REPORT INFORMATION
  Report Type: 
  Country: None (occurrence: None)
  Receive Date: 20080326
  Receipt Date: 20071114
  Transmission Date: 20080703
  Serious: No
  Sender: FDA-Public Use
  Company Number: US-BAUSCH-2007BL004155

PATIENT
  Sex: Female

DRUGS (1)
  1. LOTEMAX [Suspect]
     Indication: DRUG USE FOR UNKNOWN INDICATION
     Route: 047
     Dates: start: 20071010

REACTIONS (1)
  - EYELID PTOSIS [None]
